FAERS Safety Report 19583624 (Version 13)
Quarter: 2022Q3

REPORT INFORMATION
  Report Type: Report from Study
  Country: CN (occurrence: None)
  Receive Date: 20210720
  Receipt Date: 20220816
  Transmission Date: 20221026
  Serious: Yes (Hospitalization)
  Sender: FDA-Public Use
  Company Number: CN-ROCHE-2869703

PATIENT
  Age: 67 Year
  Sex: Male
  Weight: 59 kg

DRUGS (35)
  1. ATEZOLIZUMAB [Suspect]
     Active Substance: ATEZOLIZUMAB
     Indication: Oesophageal squamous cell carcinoma
     Dosage: ON 28/JUN/2021, HE RECEIVED MOST RECENT DOSE OF BLINDED ATEZOLIZUMAB PRIOR TO ONSET OF AE/SAE
     Route: 041
     Dates: start: 20210628
  2. TIRAGOLUMAB [Suspect]
     Active Substance: TIRAGOLUMAB
     Indication: Oesophageal squamous cell carcinoma
     Dosage: ON 28/JUN/2021, HE RECEIVED MOST RECENT DOSE OF BLINDED TIRAGOLUMAB PRIOR TO ONSET OF AE/SAE
     Route: 042
     Dates: start: 20210628
  3. PACLITAXEL [Suspect]
     Active Substance: PACLITAXEL
     Indication: Oesophageal squamous cell carcinoma
     Dosage: ON 28/JUN/2021, HE RECEIVED MOST RECENT DOSE OF PACLITAXEL (295.8 MG) PRIOR TO ONSET OF AE/SAE.
     Route: 042
     Dates: start: 20210628
  4. CISPLATIN [Suspect]
     Active Substance: CISPLATIN
     Indication: Oesophageal squamous cell carcinoma
     Dosage: ON 28/JUN/2021, HE RECEIVED MOST RECENT DOSE OF CISPLATIN (101.4 MG) PRIOR TO ONSET OF AE/SAE.
     Route: 042
     Dates: start: 20210628
  5. POTASSIUM CHLORIDE [Concomitant]
     Active Substance: POTASSIUM CHLORIDE
     Dates: start: 20210628, end: 20211023
  6. POTASSIUM CHLORIDE [Concomitant]
     Active Substance: POTASSIUM CHLORIDE
     Dates: start: 20210710, end: 20210711
  7. POTASSIUM CHLORIDE [Concomitant]
     Active Substance: POTASSIUM CHLORIDE
     Dates: start: 20210711, end: 20210711
  8. VITAMIN B6 [Concomitant]
     Active Substance: PYRIDOXINE HYDROCHLORIDE
     Dates: start: 20210628, end: 20210630
  9. APREPITANT [Concomitant]
     Active Substance: APREPITANT
     Dates: start: 20210628, end: 20210628
  10. APREPITANT [Concomitant]
     Active Substance: APREPITANT
     Dates: start: 20210629, end: 20210630
  11. PROMETHAZINE HYDROCHLORIDE [Concomitant]
     Active Substance: PROMETHAZINE HYDROCHLORIDE
     Dates: start: 20210628, end: 20210628
  12. LIDOCAINE HYDROCHLORIDE [Concomitant]
     Active Substance: LIDOCAINE HYDROCHLORIDE
     Dates: start: 20210628, end: 20210628
  13. RABEPRAZOLE SODIUM [Concomitant]
     Active Substance: RABEPRAZOLE SODIUM
     Dates: start: 20210701, end: 20210703
  14. SODIUM CHLORIDE [Concomitant]
     Active Substance: SODIUM CHLORIDE
     Dates: start: 20210629, end: 20211023
  15. WARFARIN SODIUM [Concomitant]
     Active Substance: WARFARIN SODIUM
     Dates: start: 202106
  16. METOPROLOL SUCCINATE [Concomitant]
     Active Substance: METOPROLOL SUCCINATE
     Indication: Rheumatic heart disease
  17. OMEPRAZOLE SODIUM [Concomitant]
     Active Substance: OMEPRAZOLE SODIUM
     Dates: start: 20210710, end: 20210710
  18. SODIUM CHLORIDE [Concomitant]
     Active Substance: SODIUM CHLORIDE
     Indication: Hyponatraemia
     Dates: start: 20210710, end: 20210710
  19. ONDANSETRON HYDROCHLORIDE [Concomitant]
     Active Substance: ONDANSETRON HYDROCHLORIDE
     Dates: start: 20210628, end: 20210630
  20. METOCLOPRAMIDE HYDROCHLORIDE [Concomitant]
     Active Substance: METOCLOPRAMIDE HYDROCHLORIDE
     Dates: start: 20210628, end: 20210630
  21. DEXAMETHASONE SODIUM PHOSPHATE [Concomitant]
     Active Substance: DEXAMETHASONE SODIUM PHOSPHATE
     Route: 042
     Dates: start: 20210628, end: 20210628
  22. DEXAMETHASONE SODIUM PHOSPHATE [Concomitant]
     Active Substance: DEXAMETHASONE SODIUM PHOSPHATE
     Route: 042
     Dates: start: 20210629, end: 20210630
  23. LIDOCAINE HYDROCHLORIDE [Concomitant]
     Active Substance: LIDOCAINE HYDROCHLORIDE
     Dates: start: 20210628, end: 20210628
  24. DIGOXIN [Concomitant]
     Active Substance: DIGOXIN
     Indication: Rheumatic heart disease
  25. SODIUM POTASSIUM MAGNESIUM CALCIUM AND GLUCOSE [Concomitant]
     Dates: start: 20210710, end: 20210711
  26. SODIUM POTASSIUM MAGNESIUM CALCIUM AND GLUCOSE [Concomitant]
     Dates: start: 20210711, end: 20210711
  27. DEXTROSE [Concomitant]
     Active Substance: DEXTROSE
     Dates: start: 20210710, end: 20210711
  28. DEXTROSE [Concomitant]
     Active Substance: DEXTROSE
     Dates: start: 20210711, end: 20210711
  29. DEXTROSE [Concomitant]
     Active Substance: DEXTROSE
     Dates: start: 20210628, end: 20211023
  30. AMINO ACIDS, SOURCE UNSPECIFIED [Concomitant]
     Active Substance: AMINO ACIDS, SOURCE UNSPECIFIED
     Dates: start: 20210710, end: 20210710
  31. ETIMICIN SULFATE;SODIUM CHLORIDE [Concomitant]
     Indication: Urinary tract infection
     Route: 042
     Dates: start: 20210710, end: 20210717
  32. MOXIFLOXACIN HYDROCHLORIDE [Concomitant]
     Active Substance: MOXIFLOXACIN HYDROCHLORIDE
     Indication: Urinary tract infection
     Route: 042
     Dates: start: 20210710, end: 20210717
  33. COMPOUND BETAMETHASONE [Concomitant]
     Indication: Dermatitis
     Route: 030
     Dates: start: 20210713, end: 20210713
  34. GLYCYRRHIZIN [Concomitant]
     Active Substance: GLYCYRRHIZIN
     Indication: Dermatitis
     Route: 048
     Dates: start: 20210713, end: 20210726
  35. EBASTINE [Concomitant]
     Active Substance: EBASTINE
     Indication: Dermatitis
     Route: 048
     Dates: start: 20210713, end: 20210719

REACTIONS (1)
  - Febrile neutropenia [Recovered/Resolved]

NARRATIVE: CASE EVENT DATE: 20210710
